FAERS Safety Report 6817702-X (Version None)
Quarter: 2010Q3

REPORT INFORMATION
  Report Type: 
  Country: None (occurrence: None)
  Receive Date: 20100706
  Receipt Date: 20100625
  Transmission Date: 20110219
  Serious: Yes (Other)
  Sender: FDA-Public Use
  Company Number: TW-PFIZER INC-2010079286

PATIENT
  Age: 68 Year
  Sex: Female

DRUGS (2)
  1. XALATAN [Suspect]
     Indication: GLAUCOMA
     Dosage: UNK
     Route: 047
     Dates: start: 20060101, end: 20080101
  2. XALATAN [Suspect]
     Indication: INTRAOCULAR PRESSURE INCREASED

REACTIONS (3)
  - CHEST PAIN [None]
  - DYSPNOEA [None]
  - TACHYCARDIA [None]
